FAERS Safety Report 7286006-6 (Version None)
Quarter: 2011Q1

REPORT INFORMATION
  Report Type: 
  Country: None (occurrence: None)
  Receive Date: 20110210
  Receipt Date: 20110201
  Transmission Date: 20110831
  Serious: Yes (Other)
  Sender: FDA-Public Use
  Company Number: US-ASTRAZENECA-2010SE18636

PATIENT
  Sex: Male

DRUGS (1)
  1. NEXIUM [Suspect]
     Route: 048

REACTIONS (5)
  - HEPATIC CIRRHOSIS [None]
  - MYOCARDIAL INFARCTION [None]
  - ULCER [None]
  - DIABETES MELLITUS [None]
  - SURGERY [None]
